FAERS Safety Report 4873455-6 (Version None)
Quarter: 2005Q4

REPORT INFORMATION
  Report Type: 
  Country: None (occurrence: None)
  Receive Date: 20051201
  Receipt Date: 20050819
  Transmission Date: 20060501
  Serious: No
  Sender: FDA-Public Use
  Company Number: 2005PV001366

PATIENT
  Age: 66 Year
  Sex: Female
  Weight: 84.8226 kg

DRUGS (6)
  1. BYETTA [Suspect]
     Indication: DIABETES MELLITUS NON-INSULIN-DEPENDENT
     Dosage: 5 MCG;BID;SC
     Route: 058
     Dates: start: 20050725
  2. IOZOL [Concomitant]
  3. TENORMIN [Concomitant]
  4. GLUCOTROL [Concomitant]
  5. GLUCOPHAGE [Concomitant]
  6. CLARINEX [Concomitant]

REACTIONS (6)
  - BLOOD GLUCOSE DECREASED [None]
  - DIZZINESS [None]
  - EARLY SATIETY [None]
  - FALL [None]
  - FEELING JITTERY [None]
  - NAUSEA [None]
